FAERS Safety Report 5131303-3 (Version None)
Quarter: 2006Q4

REPORT INFORMATION
  Report Type: 
  Country: None (occurrence: None)
  Receive Date: 20061020
  Receipt Date: 20061019
  Transmission Date: 20070319
  Serious: Yes (Death)
  Sender: FDA-Public Use
  Company Number: 2006PK02088

PATIENT
  Age: 87 Year
  Sex: Male
  Weight: 65 kg

DRUGS (9)
  1. NEXIUM [Suspect]
     Route: 048
     Dates: start: 20060628, end: 20060813
  2. DIPIPERON [Suspect]
     Route: 048
     Dates: start: 20060728, end: 20060813
  3. AUGMENTIN [Suspect]
     Dates: start: 20060619, end: 20060627
  4. ARICEPT [Suspect]
     Route: 048
     Dates: start: 20060724, end: 20060803
  5. MARCUMAR [Suspect]
     Indication: PULMONARY EMBOLISM
     Route: 048
     Dates: start: 20060623, end: 20060813
  6. TOREM [Suspect]
     Route: 048
     Dates: start: 20060627, end: 20060813
  7. DIOVANE [Suspect]
     Route: 048
     Dates: start: 20060619, end: 20060813
  8. LORAZEPAM [Concomitant]
     Dosage: 0.5 - 1.0 MG
     Route: 048
     Dates: start: 20060627, end: 20060727
  9. FRAGMIN [Concomitant]
     Route: 058
     Dates: start: 20060619, end: 20060731

REACTIONS (8)
  - DIARRHOEA [None]
  - DRUG INTERACTION [None]
  - GENERAL PHYSICAL HEALTH DETERIORATION [None]
  - INFECTION [None]
  - PULMONARY EMBOLISM [None]
  - RASH MACULO-PAPULAR [None]
  - RENAL IMPAIRMENT [None]
  - TOXIC EPIDERMAL NECROLYSIS [None]
